FAERS Safety Report 25901284 (Version 1)
Quarter: 2025Q4

REPORT INFORMATION
  Report Type: Other
  Country: US (occurrence: US)
  Receive Date: 20251009
  Receipt Date: 20251009
  Transmission Date: 20260117
  Serious: Yes (Hospitalization)
  Sender: APOTEX
  Company Number: US-APOTEX-2025AP030985

PATIENT
  Age: 85 Year
  Sex: Male
  Weight: 72.109 kg

DRUGS (1)
  1. LENALIDOMIDE [Suspect]
     Active Substance: LENALIDOMIDE
     Indication: Plasma cell myeloma
     Dosage: 10 MG DAILY X 21 DAYS OF 28 DAY CYCLE
     Route: 048

REACTIONS (3)
  - Gastrointestinal inflammation [Recovered/Resolved]
  - Product dose omission issue [Unknown]
  - Heart rate decreased [Unknown]

NARRATIVE: CASE EVENT DATE: 20250901
